FAERS Safety Report 5239235-7 (Version None)
Quarter: 2007Q1

REPORT INFORMATION
  Report Type: 
  Country: None (occurrence: None)
  Receive Date: 20061208
  Receipt Date: 20050711
  Transmission Date: 20070707
  Serious: Yes (Other)
  Sender: FDA-Public Use
  Company Number: 2005UW08617

PATIENT
  Age: 57 Year
  Sex: Female
  Weight: 72.574 kg

DRUGS (7)
  1. CRESTOR [Suspect]
     Indication: BLOOD CHOLESTEROL INCREASED
     Dosage: 10 MG DAILY PO
     Route: 048
     Dates: start: 20050401, end: 20050501
  2. LISINOPRIL [Concomitant]
  3. AMARYL [Concomitant]
  4. NO MATCH [Concomitant]
  5. GLUCOPHAGE [Concomitant]
  6. NEURONTIN [Concomitant]
  7. ATENOLOL [Concomitant]

REACTIONS (4)
  - CHROMATURIA [None]
  - FUNGAL RASH [None]
  - PRURITUS [None]
  - SLEEP DISORDER [None]
